FAERS Safety Report 22273252 (Version 1)
Quarter: 2023Q2

REPORT INFORMATION
  Report Type: Report from Study
  Country: US (occurrence: US)
  Receive Date: 20230502
  Receipt Date: 20230502
  Transmission Date: 20230722
  Serious: No
  Sender: FDA-Public Use
  Company Number: US-002147023-NVSC2023US099692

PATIENT
  Age: 51 Year
  Sex: Male
  Weight: 108.86 kg

DRUGS (12)
  1. METHOTREXATE [Suspect]
     Active Substance: METHOTREXATE
     Indication: Psoriatic arthropathy
     Dosage: 2.5 MG
     Route: 048
  2. CLOBETASOL [Suspect]
     Active Substance: CLOBETASOL
     Indication: Psoriatic arthropathy
     Dosage: 0.05 %
     Route: 061
  3. DILTIAZEM [Suspect]
     Active Substance: DILTIAZEM
     Indication: Psoriatic arthropathy
     Dosage: 240 MG
     Route: 048
  4. LEUCOVORIN CALCIUM [Suspect]
     Active Substance: LEUCOVORIN CALCIUM
     Indication: Psoriatic arthropathy
     Dosage: 10 MG
     Route: 048
  5. LEVOTHYROXINE [Suspect]
     Active Substance: LEVOTHYROXINE
     Indication: Psoriatic arthropathy
     Dosage: 25 UG
     Route: 048
  6. LOSARTAN [Suspect]
     Active Substance: LOSARTAN
     Indication: Psoriatic arthropathy
     Dosage: LOSARTAN-HYDROCHLOROTHIAZIDE 100-25MG
     Route: 048
  7. NAPROXEN SODIUM [Suspect]
     Active Substance: NAPROXEN SODIUM
     Indication: Psoriatic arthropathy
     Dosage: 500 MG
     Route: 065
  8. PREDNISONE [Suspect]
     Active Substance: PREDNISONE
     Indication: Psoriatic arthropathy
     Dosage: 5 MG
     Route: 065
  9. ROSUVASTATIN [Suspect]
     Active Substance: ROSUVASTATIN
     Indication: Psoriatic arthropathy
     Dosage: 20 MG
     Route: 048
  10. VOLTAREN [Suspect]
     Active Substance: DICLOFENAC SODIUM
     Indication: Psoriatic arthropathy
     Dosage: 1 %
     Route: 061
  11. COSENTYX [Suspect]
     Active Substance: SECUKINUMAB
     Indication: Psoriatic arthropathy
     Dosage: 150 MG/ML
     Route: 058
  12. CITALOPRAM [Suspect]
     Active Substance: CITALOPRAM HYDROBROMIDE
     Indication: Psoriatic arthropathy
     Route: 048

REACTIONS (1)
  - Drug ineffective [Unknown]

NARRATIVE: CASE EVENT DATE: 20230427
